FAERS Safety Report 15125720 (Version 1)
Quarter: 2018Q3

REPORT INFORMATION
  Report Type: Spontaneous
  Country: US (occurrence: US)
  Receive Date: 20180614
  Receipt Date: 20180614
  Transmission Date: 20181010
  Serious: Yes (Hospitalization)
  Sender: FDA-Public Use
  Company Number: None

PATIENT
  Sex: Male

DRUGS (13)
  1. VITAMIN B12 [Concomitant]
     Active Substance: CYANOCOBALAMIN
  2. VITAMIN E [Concomitant]
     Active Substance: .ALPHA.-TOCOPHEROL
  3. GLYCOPYRPOL [Concomitant]
  4. CARAFATE [Concomitant]
     Active Substance: SUCRALFATE
  5. TESTOSTERONE. [Concomitant]
     Active Substance: TESTOSTERONE
  6. ADVIL [Concomitant]
     Active Substance: IBUPROFEN
  7. FLUTICASONE. [Concomitant]
     Active Substance: FLUTICASONE
  8. FOLIC ACID. [Concomitant]
     Active Substance: FOLIC ACID
  9. NUEDEXTA [Concomitant]
     Active Substance: DEXTROMETHORPHAN HYDROBROMIDE\QUINIDINE SULFATE
  10. RILUZOLE. [Suspect]
     Active Substance: RILUZOLE
     Indication: AMYOTROPHIC LATERAL SCLEROSIS
     Route: 048
     Dates: start: 20170926
  11. METOPROLOL. [Concomitant]
     Active Substance: METOPROLOL
  12. VITAMIN D3 [Concomitant]
     Active Substance: CHOLECALCIFEROL
  13. DELSYM [Concomitant]
     Active Substance: DEXTROMETHORPHAN

REACTIONS (1)
  - Abdominal pain [None]
